FAERS Safety Report 11661870 (Version 1)
Quarter: 2015Q4

REPORT INFORMATION
  Report Type: Spontaneous
  Country: JP (occurrence: JP)
  Receive Date: 20151026
  Receipt Date: 20151026
  Transmission Date: 20160304
  Serious: Yes (Other)
  Sender: FDA-Public Use
  Company Number: PHJP1998JP001032

PATIENT
  Age: 42 Year
  Sex: Male

DRUGS (2)
  1. TEGRETOL [Suspect]
     Active Substance: CARBAMAZEPINE
     Indication: EPILEPSY
     Dosage: 800 MG, QD
     Dates: end: 19980120
  2. VOLTAREN [Suspect]
     Active Substance: DICLOFENAC SODIUM
     Indication: PYREXIA
     Dosage: 25 MG, BID
     Dates: start: 19980121

REACTIONS (11)
  - Dialysis [None]
  - Acute kidney injury [Recovered/Resolved]
  - Pyrexia [Unknown]
  - Depressed level of consciousness [None]
  - Blood creatinine increased [Unknown]
  - Alanine aminotransferase increased [Unknown]
  - Rhabdomyolysis [Recovered/Resolved]
  - Aspartate aminotransferase [Unknown]
  - Blood lactate dehydrogenase increased [None]
  - White blood cell count increased [Unknown]
  - Seizure [Recovered/Resolved]

NARRATIVE: CASE EVENT DATE: 19980121
